FAERS Safety Report 22063285 (Version 1)
Quarter: 2023Q1

REPORT INFORMATION
  Report Type: Spontaneous
  Country: DE (occurrence: DE)
  Receive Date: 20230306
  Receipt Date: 20230306
  Transmission Date: 20230417
  Serious: Yes (Hospitalization, Other)
  Sender: FDA-Public Use
  Company Number: DE-MLMSERVICE-20230215-4108046-1

PATIENT

DRUGS (1)
  1. ALLOPURINOL [Suspect]
     Active Substance: ALLOPURINOL
     Indication: Blood uric acid increased

REACTIONS (3)
  - Drug reaction with eosinophilia and systemic symptoms [Unknown]
  - Cholestatic liver injury [Recovered/Resolved]
  - Enteritis [Unknown]
